FAERS Safety Report 10727429 (Version 2)
Quarter: 2015Q2

REPORT INFORMATION
  Report Type: Report from Study
  Country: US (occurrence: US)
  Receive Date: 20150121
  Receipt Date: 20150413
  Transmission Date: 20150821
  Serious: Yes (Other)
  Sender: FDA-Public Use
  Company Number: US-BAYER-2015-006320

PATIENT
  Age: 77 Year
  Sex: Female

DRUGS (1)
  1. STIVARGA [Suspect]
     Active Substance: REGORAFENIB
     Indication: COLON CANCER
     Dosage: DAILY DOSE 160 MG
     Route: 048
     Dates: start: 20141212, end: 20150211

REACTIONS (15)
  - Pyrexia [Recovered/Resolved]
  - Chest injury [Recovered/Resolved]
  - Diplopia [Recovered/Resolved]
  - Hyperkeratosis [Recovered/Resolved]
  - Blister [None]
  - Adverse event [Recovered/Resolved]
  - Nervous system disorder [Recovered/Resolved]
  - Vision blurred [Recovered/Resolved]
  - Diarrhoea [Recovered/Resolved]
  - Hearing impaired [Recovered/Resolved]
  - Metastases to central nervous system [None]
  - Road traffic accident [Recovered/Resolved]
  - Rash generalised [Recovered/Resolved]
  - Nausea [Recovered/Resolved]
  - Vomiting [Recovered/Resolved]

NARRATIVE: CASE EVENT DATE: 20141223
